FAERS Safety Report 7299602-7 (Version None)
Quarter: 2011Q1

REPORT INFORMATION
  Report Type: 
  Country: None (occurrence: None)
  Receive Date: 20110209
  Receipt Date: 20110126
  Transmission Date: 20110831
  Serious: Yes (Hospitalization)
  Sender: FDA-Public Use
  Company Number: 2009000396

PATIENT
  Age: 68 Year
  Sex: Male
  Weight: 62 kg

DRUGS (8)
  1. ERLOTINIB (ERLOTINIB) (TABLET) (ERLOTINIB) [Suspect]
     Indication: LUNG ADENOCARCINOMA
     Dosage: 150 MG, QD,ORAL
     Route: 048
     Dates: start: 20080807, end: 20080809
  2. MICARDIS [Concomitant]
  3. NOVOLIN N [Concomitant]
  4. TAMSULOSIN HYDROCHLORIDE [Concomitant]
  5. BASEN (VOGLIBOSE) [Concomitant]
  6. GLUFAST [Concomitant]
  7. AMLODIPINE BESYLATE [Concomitant]
  8. GASMOTIN (MOSAPRIDE CITRATE0 [Concomitant]

REACTIONS (12)
  - RESPIRATORY DISORDER [None]
  - BRONCHIAL WALL THICKENING [None]
  - NEOPLASM MALIGNANT [None]
  - INFECTION [None]
  - PYREXIA [None]
  - CONDITION AGGRAVATED [None]
  - INTERSTITIAL LUNG DISEASE [None]
  - PNEUMONIA VIRAL [None]
  - CARDIOMEGALY [None]
  - NON-SMALL CELL LUNG CANCER [None]
  - LEFT VENTRICULAR DYSFUNCTION [None]
  - PLEURAL EFFUSION [None]
